FAERS Safety Report 23458881 (Version 1)
Quarter: 2024Q1

REPORT INFORMATION
  Report Type: Report from Study
  Country: CA (occurrence: CA)
  Receive Date: 20240131
  Receipt Date: 20240131
  Transmission Date: 20240410
  Serious: Yes (Hospitalization)
  Sender: FDA-Public Use
  Company Number: CA-VER-202400036

PATIENT
  Age: 74 Year
  Sex: Male

DRUGS (4)
  1. TRIPTORELIN PAMOATE [Suspect]
     Active Substance: TRIPTORELIN PAMOATE
     Indication: Prostate cancer
     Dosage: 11.25 MG,3 M
     Route: 030
     Dates: start: 20230712, end: 20230712
  2. TRIPTORELIN PAMOATE [Suspect]
     Active Substance: TRIPTORELIN PAMOATE
     Indication: Prostate cancer
     Dosage: 11.25 MG,3 M
     Route: 030
     Dates: start: 20231012, end: 20231012
  3. TRIPTORELIN PAMOATE [Suspect]
     Active Substance: TRIPTORELIN PAMOATE
     Indication: Prostate cancer
     Dosage: 11.25 MG,3 M
     Route: 030
     Dates: start: 20240116, end: 20240116
  4. TRIPTORELIN PAMOATE [Suspect]
     Active Substance: TRIPTORELIN PAMOATE
     Indication: Prostate cancer
     Dosage: ONCE / 3 MONTHS
     Route: 030
     Dates: start: 20230420, end: 20230420

REACTIONS (10)
  - Inappropriate schedule of product administration [Recovered/Resolved]
  - Concussion [Recovered/Resolved]
  - Asthenia [Not Recovered/Not Resolved]
  - Fatigue [Not Recovered/Not Resolved]
  - Inappropriate schedule of product administration [Not Recovered/Not Resolved]
  - Head injury [Recovered/Resolved]
  - Haematoma [Recovered/Resolved]
  - Hot flush [Not Recovered/Not Resolved]
  - Laboratory test [Unknown]
  - Scan abnormal [Unknown]

NARRATIVE: CASE EVENT DATE: 20230101
